FAERS Safety Report 25016280 (Version 1)
Quarter: 2025Q1

REPORT INFORMATION
  Report Type: Spontaneous
  Country: GB (occurrence: GB)
  Receive Date: 20250227
  Receipt Date: 20250227
  Transmission Date: 20250409
  Serious: Yes (Disabling)
  Sender: SAMSUNG BIOEPIS
  Company Number: None

PATIENT
  Age: 37 Year
  Sex: Male

DRUGS (1)
  1. ETANERCEPT [Suspect]
     Active Substance: ETANERCEPT
     Indication: Product used for unknown indication
     Dosage: 50MG WEEKLY
     Dates: start: 20221031, end: 20240501

REACTIONS (4)
  - Alopecia totalis [Not Recovered/Not Resolved]
  - Mental disorder [Unknown]
  - Psychiatric symptom [Unknown]
  - Loss of personal independence in daily activities [Unknown]

NARRATIVE: CASE EVENT DATE: 20240501
